FAERS Safety Report 7435218-7 (Version None)
Quarter: 2011Q2

REPORT INFORMATION
  Report Type: 
  Country: None (occurrence: None)
  Receive Date: 20110425
  Receipt Date: 20110415
  Transmission Date: 20111010
  Serious: Yes (Death, Hospitalization, Other)
  Sender: FDA-Public Use
  Company Number: JP-GENZYME-THYM-1001971

PATIENT
  Age: 61 Year
  Sex: Male
  Weight: 64 kg

DRUGS (15)
  1. ACETAMINOPHEN [Concomitant]
     Indication: PREMEDICATION
     Dosage: UNK
     Dates: start: 20091105, end: 20091106
  2. FLUCONAZOLE [Concomitant]
     Indication: ANTIFUNGAL PROPHYLAXIS
     Dosage: UNK
     Dates: start: 20091031, end: 20091222
  3. VORICONAZOLE [Concomitant]
     Dosage: UNK
     Dates: start: 20100119, end: 20100321
  4. RADIOLOGY [Concomitant]
     Indication: MYELOFIBROSIS
     Dosage: UNK
     Dates: start: 20091009, end: 20091023
  5. BACTRIM [Concomitant]
     Indication: ANTIFUNGAL PROPHYLAXIS
     Dosage: UNK
     Dates: start: 20091021, end: 20091103
  6. VORICONAZOLE [Concomitant]
     Indication: ANTIFUNGAL PROPHYLAXIS
     Dosage: UNK
     Dates: start: 20091222, end: 20091231
  7. METHOTREXATE [Concomitant]
     Indication: PROPHYLAXIS AGAINST GRAFT VERSUS HOST DISEASE
     Dosage: UNK
     Dates: start: 20091112, end: 20091122
  8. AMPHOTERICIN B [Concomitant]
     Indication: ANTIFUNGAL PROPHYLAXIS
     Dosage: UNK
     Dates: start: 20100101, end: 20100118
  9. METHYLPREDNISOLONE SODIUM SUCCINATE [Concomitant]
     Indication: PREMEDICATION
     Dosage: UNK
     Dates: start: 20091104, end: 20091106
  10. THYMOGLOBULIN [Suspect]
     Indication: BONE MARROW CONDITIONING REGIMEN
     Dosage: 80 MG, QD
     Route: 042
     Dates: start: 20091105, end: 20091106
  11. CHLORPHENIRAMINE MALEATE [Concomitant]
     Indication: PREMEDICATION
     Dosage: UNK
     Dates: start: 20091105, end: 20091106
  12. ACICLOVIR [Concomitant]
     Indication: ANTIVIRAL PROPHYLAXIS
     Dosage: UNK
     Dates: start: 20091108, end: 20091125
  13. MELPHALAN [Concomitant]
     Indication: BONE MARROW CONDITIONING REGIMEN
     Dosage: 140 MG/M2, UNK
  14. FLUDARA [Suspect]
     Indication: BONE MARROW CONDITIONING REGIMEN
     Dosage: 125 MG/M2, UNK
  15. TACROLIMUS [Concomitant]
     Indication: PROPHYLAXIS AGAINST GRAFT VERSUS HOST DISEASE
     Dosage: UNK
     Dates: start: 20091110, end: 20100320

REACTIONS (6)
  - ENTEROCOCCAL SEPSIS [None]
  - RESPIRATORY FAILURE [None]
  - INTERSTITIAL LUNG DISEASE [None]
  - CYTOMEGALOVIRUS INFECTION [None]
  - GRAFT VERSUS HOST DISEASE [None]
  - ABSCESS BACTERIAL [None]
